FAERS Safety Report 7897432-6 (Version None)
Quarter: 2011Q4

REPORT INFORMATION
  Report Type: 
  Country: None (occurrence: None)
  Receive Date: 20111107
  Receipt Date: 20111103
  Transmission Date: 20120403
  Serious: Yes (Life-Threatening, Hospitalization)
  Sender: FDA-Public Use
  Company Number: DE-B.I. PHARMACEUTICALS,INC./RIDGEFIELD-2011-DE-06251DE

PATIENT

DRUGS (1)
  1. PRADAXA [Suspect]
     Indication: CARDIAC FIBRILLATION

REACTIONS (2)
  - CEREBRAL HAEMORRHAGE [None]
  - FALL [None]
